FAERS Safety Report 8869105 (Version 1)
Quarter: 2012Q4

REPORT INFORMATION
  Report Type: 
  Country: US (occurrence: US)
  Receive Date: 20121023
  Receipt Date: 20121023
  Transmission Date: 20130627
  Serious: No
  Sender: FDA-Public Use
  Company Number: US-AMGEN-USASP2012053933

PATIENT
  Age: 44 Year
  Sex: Female

DRUGS (2)
  1. ENBREL [Suspect]
     Indication: PRODUCT USED FOR UNKNOWN INDICATION
     Dosage: 50 mg, qwk
     Route: 058
     Dates: start: 20110714
  2. METHOTREXATE [Concomitant]
     Dosage: UNK

REACTIONS (4)
  - Sinus headache [Recovered/Resolved]
  - Hepatic enzyme increased [Unknown]
  - Nasal congestion [Recovered/Resolved]
  - Paranasal sinus hypersecretion [Recovered/Resolved]
